FAERS Safety Report 10379019 (Version 3)
Quarter: 2014Q4

REPORT INFORMATION
  Report Type: Spontaneous
  Country: IT (occurrence: None)
  Receive Date: 20140808
  Receipt Date: 20141126
  Transmission Date: 20150528
  Serious: Yes (Hospitalization)
  Sender: FDA-Public Use
  Company Number: 7311933

PATIENT
  Age: 56 Year
  Sex: Female

DRUGS (1)
  1. EUTIROX (LEVOTHYROXINE SODIUM) (100 MG) (LEVOTHYROXINE SODIUM) [Suspect]
     Active Substance: LEVOTHYROXINE SODIUM
     Indication: HYPOTHYROIDISM
     Dosage: 100 MCG (100 MCG, 1 IN 1 D), ORAL  7 YEARS
     Route: 048
     Dates: start: 20070101, end: 20140722

REACTIONS (2)
  - Hyperthyroidism [None]
  - Atrial fibrillation [None]

NARRATIVE: CASE EVENT DATE: 20140720
